FAERS Safety Report 9743824 (Version 1)
Quarter: 2013Q4

REPORT INFORMATION
  Report Type: Spontaneous
  Country: US (occurrence: US)
  Receive Date: 20131210
  Receipt Date: 20131210
  Transmission Date: 20140711
  Serious: Yes (Other)
  Sender: FDA-Public Use
  Company Number: US-TEVA-381529USA

PATIENT
  Age: 41 Year
  Sex: Female
  Weight: 107.14 kg

DRUGS (3)
  1. PARAGARD 380A [Suspect]
     Indication: CONTRACEPTION
     Dates: start: 20121203, end: 20130115
  2. MIDRIN [Concomitant]
     Indication: MIGRAINE
  3. INDERAL [Concomitant]
     Indication: MIGRAINE

REACTIONS (2)
  - Device dislocation [Recovered/Resolved]
  - Pelvic pain [Recovered/Resolved]
